FAERS Safety Report 7505594-5 (Version None)
Quarter: 2011Q2

REPORT INFORMATION
  Report Type: 
  Country: None (occurrence: None)
  Receive Date: 20110526
  Receipt Date: 20110524
  Transmission Date: 20111010
  Serious: Yes (Other)
  Sender: FDA-Public Use
  Company Number: IT-PFIZER INC-2011112327

PATIENT

DRUGS (1)
  1. CARDURA [Suspect]
     Indication: CARDIAC FAILURE
     Dosage: UNK

REACTIONS (2)
  - DRUG ADMINISTRATION ERROR [None]
  - SHOCK [None]
